FAERS Safety Report 11222933 (Version 2)
Quarter: 2015Q3

REPORT INFORMATION
  Report Type: Spontaneous
  Country: FR (occurrence: FR)
  Receive Date: 20150626
  Receipt Date: 20150713
  Transmission Date: 20151125
  Serious: Yes (Life-Threatening, Hospitalization)
  Sender: FDA-Public Use
  Company Number: FR-ABBVIE-15P-056-1416192-00

PATIENT
  Age: 61 Year
  Sex: Male

DRUGS (8)
  1. KALETRA [Suspect]
     Active Substance: LOPINAVIR\RITONAVIR
     Indication: HIV INFECTION
     Dosage: 200/50 MG
     Route: 048
  2. PREZISTA [Suspect]
     Active Substance: DARUNAVIR ETHANOLATE
     Indication: HIV INFECTION
     Route: 048
     Dates: start: 20150223, end: 20150408
  3. VIRAMUNE [Concomitant]
     Active Substance: NEVIRAPINE
     Indication: HIV INFECTION
  4. ACUPAN [Suspect]
     Active Substance: NEFOPAM HYDROCHLORIDE
     Indication: SCIATICA
     Route: 048
     Dates: start: 20150320, end: 20150408
  5. ISENTRESS [Suspect]
     Active Substance: RALTEGRAVIR POTASSIUM
     Indication: HIV INFECTION
     Route: 048
     Dates: start: 20150223, end: 20150408
  6. NORVIR [Suspect]
     Active Substance: RITONAVIR
     Indication: HIV INFECTION
     Route: 048
     Dates: start: 20150223, end: 20150408
  7. KALETRA [Suspect]
     Active Substance: LOPINAVIR\RITONAVIR
     Dosage: 200/50 MG
     Route: 048
     Dates: start: 20150126, end: 20150223
  8. KALETRA [Suspect]
     Active Substance: LOPINAVIR\RITONAVIR
     Dosage: 200/50 MG
     Route: 048
     Dates: start: 20150408

REACTIONS (10)
  - Viral load decreased [Unknown]
  - Lymphadenopathy [Unknown]
  - Hepatic failure [Recovered/Resolved]
  - Blood lactic acid increased [Unknown]
  - Hepatocellular injury [Unknown]
  - Drug reaction with eosinophilia and systemic symptoms [Recovered/Resolved]
  - Neuropathy peripheral [Unknown]
  - Sciatica [Unknown]
  - Toxoplasmosis [Unknown]
  - Drug-induced liver injury [Recovering/Resolving]

NARRATIVE: CASE EVENT DATE: 2002
